FAERS Safety Report 10047330 (Version 1)
Quarter: 2014Q1

REPORT INFORMATION
  Report Type: Spontaneous
  Country: BR (occurrence: BR)
  Receive Date: 20140331
  Receipt Date: 20140331
  Transmission Date: 20141002
  Serious: Yes (Other)
  Sender: FDA-Public Use
  Company Number: BR-JNJFOC-20140314130

PATIENT
  Sex: Female

DRUGS (6)
  1. XARELTO [Suspect]
     Indication: PRODUCT USED FOR UNKNOWN INDICATION
     Route: 048
  2. DIAMICRON [Concomitant]
     Route: 048
  3. LOSARTAN [Concomitant]
     Route: 048
  4. METFORMIN [Concomitant]
     Route: 048
  5. SELOZOK [Concomitant]
     Route: 048
  6. FUROSEMIDE [Concomitant]
     Route: 048

REACTIONS (2)
  - Ischaemic stroke [Unknown]
  - Drug ineffective [Unknown]
